FAERS Safety Report 8300933 (Version 10)
Quarter: 2020Q3

REPORT INFORMATION
  Report Type: Report from Study
  Country: FR (occurrence: FR)
  Receive Date: 20111219
  Receipt Date: 20130502
  Transmission Date: 20201104
  Serious: Yes (Hospitalization)
  Sender: FDA-Public Use
  Company Number: FR-ROCHE-1020753

PATIENT
  Age: 58 Year
  Sex: Female
  Weight: 69 kg

DRUGS (30)
  1. SOLU?MEDROL [Concomitant]
     Active Substance: METHYLPREDNISOLONE SODIUM SUCCINATE
     Route: 065
     Dates: start: 20111201, end: 20111201
  2. POLARAMINE [Concomitant]
     Active Substance: DEXCHLORPHENIRAMINE MALEATE
     Route: 065
     Dates: start: 20111110, end: 20111110
  3. RANITIDINE. [Concomitant]
     Active Substance: RANITIDINE
     Route: 065
     Dates: start: 20111117, end: 20111117
  4. KYTRIL [Concomitant]
     Active Substance: GRANISETRON HYDROCHLORIDE
     Route: 065
     Dates: start: 20111117, end: 20111117
  5. KYTRIL [Concomitant]
     Active Substance: GRANISETRON HYDROCHLORIDE
     Dosage: DAY 2, 9 AND 15
     Route: 048
     Dates: start: 20111105
  6. PACLITAXEL. [Suspect]
     Active Substance: PACLITAXEL
     Indication: BREAST CANCER
     Dosage: DAY 1, 8 AND 15, 500 ML GLUCOSE 5 % IV OVER 1 HOUR, LAST DOSE PRIOR TO SAE 01 DEC 2011.
     Route: 042
     Dates: start: 20111104
  7. SOLU?MEDROL [Concomitant]
     Active Substance: METHYLPREDNISOLONE SODIUM SUCCINATE
     Dosage: DAY 1, 8 AND 15, DIRECT IV PUSH 30 MIN BEFORE TAXAOL
     Route: 042
     Dates: start: 20111104
  8. POLARAMINE [Concomitant]
     Active Substance: DEXCHLORPHENIRAMINE MALEATE
     Dosage: DAY 1, 8 AND 15, DIRECT IV PUSH OVER 5 MIN 30 MIN BEFORE TAXAOL, 1 AMPOULE
     Route: 042
     Dates: start: 20111104
  9. KYTRIL [Concomitant]
     Active Substance: GRANISETRON HYDROCHLORIDE
     Dosage: 1 AMPOULE, DAY 1, 8 AND 15
     Route: 042
     Dates: start: 20111104
  10. KYTRIL [Concomitant]
     Active Substance: GRANISETRON HYDROCHLORIDE
     Route: 065
     Dates: start: 20111110, end: 20111110
  11. KYTRIL [Concomitant]
     Active Substance: GRANISETRON HYDROCHLORIDE
     Route: 065
     Dates: start: 20111112, end: 20111112
  12. VOGALENE [Concomitant]
     Active Substance: METOPIMAZINE
     Indication: VOMITING
     Dosage: DAY 1?15 EACH MONTH
     Route: 048
     Dates: start: 20111104, end: 20111118
  13. DIFFU K [Concomitant]
     Active Substance: POTASSIUM CHLORIDE
     Indication: ELECTROLYTE IMBALANCE
     Route: 065
     Dates: start: 20111210, end: 20111210
  14. ONARTUZUMAB. [Suspect]
     Active Substance: ONARTUZUMAB
     Indication: BREAST CANCER
     Dosage: DAY 1 AND 15, LAST DOSE PRIOR TO SAE 01 DEC 2011
     Route: 042
     Dates: start: 20111104, end: 20111201
  15. PACLITAXEL. [Suspect]
     Active Substance: PACLITAXEL
     Dosage: LAST DOSE OF DRUG PRIOR TO SAE 01/DEC/2011.
     Route: 042
     Dates: start: 20111104
  16. POLARAMINE [Concomitant]
     Active Substance: DEXCHLORPHENIRAMINE MALEATE
     Route: 065
     Dates: start: 20111117, end: 20111117
  17. RANITIDINE. [Concomitant]
     Active Substance: RANITIDINE
     Route: 065
     Dates: start: 20111201, end: 20111201
  18. KYTRIL [Concomitant]
     Active Substance: GRANISETRON HYDROCHLORIDE
     Route: 065
     Dates: start: 20111202, end: 20111202
  19. POLARAMINE [Concomitant]
     Active Substance: DEXCHLORPHENIRAMINE MALEATE
     Route: 065
     Dates: start: 20111201, end: 20111201
  20. TAREG [Concomitant]
     Active Substance: VALSARTAN
     Indication: HYPERTENSION
  21. RANITIDINE. [Concomitant]
     Active Substance: RANITIDINE
     Dosage: 1 AMPOULE,DAY 1, 8 AND 15, DIRECT IV PUSH OVER 5 MIN 30 MIN BEFORE TAXAOL,
     Route: 042
     Dates: start: 20111104
  22. RANITIDINE. [Concomitant]
     Active Substance: RANITIDINE
     Route: 065
     Dates: start: 20111110, end: 20111110
  23. NACL [Concomitant]
     Active Substance: SODIUM CHLORIDE
     Dosage: DAY 1 AND 15, 0.9 PERCENTAGE 50 ML
     Route: 042
     Dates: start: 20111104
  24. KYTRIL [Concomitant]
     Active Substance: GRANISETRON HYDROCHLORIDE
     Route: 065
     Dates: start: 20111201, end: 20111201
  25. VOGALENE [Concomitant]
     Active Substance: METOPIMAZINE
     Route: 065
     Dates: start: 20111201, end: 20111201
  26. IMODIUM [Concomitant]
     Active Substance: LOPERAMIDE HYDROCHLORIDE
     Route: 065
     Dates: start: 201111, end: 201111
  27. SOLU?MEDROL [Concomitant]
     Active Substance: METHYLPREDNISOLONE SODIUM SUCCINATE
     Route: 065
     Dates: start: 20111110, end: 20111110
  28. GLUCOSE [Concomitant]
     Active Substance: DEXTROSE
     Dosage: DAY 1, 8 AND 15, 50 ML BAG OF 5 % GLUCOSE
     Route: 042
     Dates: start: 20111104, end: 20111118
  29. KYTRIL [Concomitant]
     Active Substance: GRANISETRON HYDROCHLORIDE
     Route: 065
     Dates: start: 20111118, end: 20111118
  30. BEVACIZUMAB. [Suspect]
     Active Substance: BEVACIZUMAB
     Indication: RECTAL CANCER
     Dosage: DAY 1 AND 15, LAST DOSE PRIOR TO SAE 01 DEC 2011
     Route: 042
     Dates: start: 20111104, end: 20111201

REACTIONS (2)
  - Electrolyte imbalance [Recovered/Resolved]
  - Gastrointestinal perforation [Recovered/Resolved]

NARRATIVE: CASE EVENT DATE: 20111209
